FAERS Safety Report 14195788 (Version 3)
Quarter: 2018Q1

REPORT INFORMATION
  Report Type: Spontaneous
  Country: DE (occurrence: DE)
  Receive Date: 20171116
  Receipt Date: 20180222
  Transmission Date: 20180508
  Serious: Yes (Other)
  Sender: FDA-Public Use
  Company Number: PHHY2017DE166975

PATIENT
  Sex: Female
  Weight: 84 kg

DRUGS (8)
  1. NOVAMIN (METAMIZOLE SODIUM) [Concomitant]
     Active Substance: METAMIZOLE SODIUM
     Indication: PAIN
  2. GILENYA [Suspect]
     Active Substance: FINGOLIMOD HYDROCHLORIDE
     Indication: MULTIPLE SCLEROSIS
     Dosage: 0.5 MG, QD
     Route: 048
     Dates: start: 20161008, end: 20170730
  3. PREGABALIN. [Suspect]
     Active Substance: PREGABALIN
     Indication: NEURALGIA
     Dosage: 125 MG, BID
     Route: 048
     Dates: start: 201507
  4. DEKRISTOL [Concomitant]
     Active Substance: CHOLECALCIFEROL
     Indication: PRODUCT USED FOR UNKNOWN INDICATION
     Dosage: UNK
     Route: 065
  5. SATIVEX [Concomitant]
     Active Substance: NABIXIMOLS
     Indication: PRODUCT USED FOR UNKNOWN INDICATION
     Dosage: UNK
     Route: 065
  6. CERAZETTE [Concomitant]
     Active Substance: DESOGESTREL
     Indication: PRODUCT USED FOR UNKNOWN INDICATION
     Dosage: UNK
     Route: 065
  7. TOLPERISONE HYDROCHLORIDE [Suspect]
     Active Substance: TOLPERISONE HYDROCHLORIDE
     Indication: MUSCLE SPASTICITY
     Dosage: 250 MG, QD
     Route: 048
     Dates: start: 201202, end: 201708
  8. NOVAMIN (METAMIZOLE SODIUM) [Concomitant]
     Active Substance: METAMIZOLE SODIUM
     Dosage: 500 MG, PRN
     Route: 048
     Dates: start: 201202, end: 201708

REACTIONS (9)
  - Hepatic enzyme increased [Recovered/Resolved]
  - Blood triglycerides increased [Unknown]
  - Central nervous system lesion [Unknown]
  - Red blood cell count increased [Unknown]
  - Blood cholesterol increased [Unknown]
  - Cholelithiasis [Unknown]
  - Drug-induced liver injury [Recovered/Resolved]
  - White blood cell count increased [Unknown]
  - Uterine leiomyoma [Unknown]
